FAERS Safety Report 13954460 (Version 1)
Quarter: 2017Q3

REPORT INFORMATION
  Report Type: Spontaneous
  Country: US (occurrence: US)
  Receive Date: 20170909
  Receipt Date: 20170909
  Transmission Date: 20171128
  Serious: Yes (Disabling)
  Sender: FDA-Public Use
  Company Number: None

PATIENT
  Age: 61 Year
  Sex: Female
  Weight: 76.5 kg

DRUGS (2)
  1. BOTOX [Suspect]
     Active Substance: ONABOTULINUMTOXINA
     Indication: MIGRAINE
     Route: 058
     Dates: start: 20120915, end: 20170901
  2. VITAMIN D [Concomitant]
     Active Substance: CHOLECALCIFEROL

REACTIONS (12)
  - Pyrexia [None]
  - Infection [None]
  - Back pain [None]
  - Rhinorrhoea [None]
  - Throat irritation [None]
  - Hyperhidrosis [None]
  - Depression [None]
  - Vision blurred [None]
  - Musculoskeletal stiffness [None]
  - Neck pain [None]
  - Influenza like illness [None]
  - Hot flush [None]
